FAERS Safety Report 22016886 (Version 1)
Quarter: 2023Q1

REPORT INFORMATION
  Report Type: Spontaneous
  Country: PL (occurrence: PL)
  Receive Date: 20230221
  Receipt Date: 20230221
  Transmission Date: 20230417
  Serious: Yes (Other)
  Sender: FDA-Public Use
  Company Number: None

PATIENT
  Age: 31 Year
  Sex: Female
  Weight: 56 kg

DRUGS (1)
  1. CLINDAMYCIN [Suspect]
     Active Substance: CLINDAMYCIN
     Indication: Dermatitis contact
     Dosage: FREQ:3 D;
     Route: 048
     Dates: start: 20190803, end: 20190810

REACTIONS (2)
  - Drug eruption [Recovered/Resolved]
  - Rash [Recovered/Resolved]
